FAERS Safety Report 9640459 (Version 1)
Quarter: 2013Q4

REPORT INFORMATION
  Report Type: Spontaneous
  Country: US (occurrence: None)
  Receive Date: 20131022
  Receipt Date: 20131022
  Transmission Date: 20140711
  Serious: Yes (Disabling)
  Sender: FDA-Public Use
  Company Number: None

PATIENT
  Age: 67 Year
  Sex: Female
  Weight: 72.58 kg

DRUGS (1)
  1. LEVOFLOXACIN [Suspect]
     Indication: RESPIRATORY TRACT INFECTION
     Dosage: 500 MG PILLS, ONCE DAILY, BY MOUTH
     Route: 048
     Dates: start: 20130530, end: 20130610

REACTIONS (3)
  - Muscle spasms [None]
  - Heart rate irregular [None]
  - Tendonitis [None]
